FAERS Safety Report 4698756-6 (Version None)
Quarter: 2005Q2

REPORT INFORMATION
  Report Type: 
  Country: None (occurrence: None)
  Receive Date: 20050621
  Receipt Date: 20050617
  Transmission Date: 20051028
  Serious: Yes (Hospitalization)
  Sender: FDA-Public Use
  Company Number: 050506-0000640

PATIENT
  Age: 43 Year
  Sex: Female

DRUGS (6)
  1. CLORAZEPATE DIPOTASSIUM [Suspect]
     Dosage: PO
     Route: 048
     Dates: end: 20050215
  2. NORVIR [Suspect]
     Indication: HIV INFECTION
     Dosage: 200.0 MG; QD; PO
     Route: 048
     Dates: start: 20020209
  3. EFAVIRENZ [Suspect]
     Indication: HIV INFECTION
     Dosage: 600.0 MG; QD; PO
     Route: 048
     Dates: start: 20040624
  4. FOSAMPRENAVIR [Suspect]
     Indication: HIV INFECTION
     Dosage: 700 MG; BID; PO
     Route: 048
     Dates: start: 20041105
  5. BACTRIM [Suspect]
     Dosage: QD; PO
     Route: 048
  6. METHADONE HCL [Suspect]
     Dosage: PO
     Route: 048
     Dates: end: 20050219

REACTIONS (10)
  - ASTHENIA [None]
  - DEPRESSED LEVEL OF CONSCIOUSNESS [None]
  - FEELING COLD [None]
  - HEPATIC ENCEPHALOPATHY [None]
  - HEPATIC FAILURE [None]
  - HEPATITIS C [None]
  - PAIN IN EXTREMITY [None]
  - PANCREATIC ENZYMES INCREASED [None]
  - PROTHROMBIN LEVEL DECREASED [None]
  - SOMNOLENCE [None]
